FAERS Safety Report 14979855 (Version 1)
Quarter: 2018Q2

REPORT INFORMATION
  Report Type: Spontaneous
  Country: JP (occurrence: JP)
  Receive Date: 20180606
  Receipt Date: 20180606
  Transmission Date: 20180711
  Serious: Yes (Death)
  Sender: FDA-Public Use
  Company Number: JP-BAYER-2018-101525

PATIENT
  Age: 80 Year
  Sex: Male

DRUGS (1)
  1. XOFIGO [Suspect]
     Active Substance: RADIUM RA-223 DICHLORIDE
     Indication: PROSTATE CANCER
     Dosage: 55 KBQ, Q4WK
     Route: 042
     Dates: start: 20170808, end: 20171003

REACTIONS (3)
  - Blood alkaline phosphatase decreased [None]
  - Prostate cancer [Fatal]
  - Prostatic specific antigen increased [None]

NARRATIVE: CASE EVENT DATE: 201801
